FAERS Safety Report 7674004-X (Version None)
Quarter: 2011Q3

REPORT INFORMATION
  Report Type: 
  Country: None (occurrence: None)
  Receive Date: 20110810
  Receipt Date: 20110330
  Transmission Date: 20111222
  Serious: No
  Sender: FDA-Public Use
  Company Number: US-GLAXOSMITHKLINE-A0921709A

PATIENT
  Age: 40 Year
  Sex: Female

DRUGS (3)
  1. JANUVIA [Concomitant]
  2. PAXIL CR [Suspect]
     Indication: PRODUCT USED FOR UNKNOWN INDICATION
     Dosage: 25MG TWICE PER DAY
     Route: 048
     Dates: start: 20030101, end: 20110321
  3. METOPROLOL TARTRATE [Concomitant]

REACTIONS (5)
  - RESTLESSNESS [None]
  - DRUG ADMINISTRATION ERROR [None]
  - ANXIETY [None]
  - INSOMNIA [None]
  - TREMOR [None]
